FAERS Safety Report 9602157 (Version 1)
Quarter: 2013Q4

REPORT INFORMATION
  Report Type: Spontaneous
  Country: GB (occurrence: None)
  Receive Date: 20131003
  Receipt Date: 20131003
  Transmission Date: 20140711
  Serious: Yes (Life-Threatening, Hospitalization, Other)
  Sender: FDA-Public Use
  Company Number: GB-ALKEM-000165

PATIENT
  Age: 71 Year
  Sex: Female

DRUGS (7)
  1. CEPHALEXIN [Suspect]
     Indication: LOWER RESPIRATORY TRACT INFECTION
     Dosage: 250.00 MG-3.00 TIMES PER-1.0 DAYS
     Route: 048
     Dates: start: 201302
  2. TIOTROPIUM BROMIDE (TIOTROPIUM BROMIDE) [Concomitant]
  3. SERETIDE (SERETIDE) [Concomitant]
  4. CO-CODAMOL(CO-CODAMOL) [Concomitant]
  5. FOLIC ACID (FOLIC ACID) [Concomitant]
  6. METHOTREXATE(METHOTREXATE) [Concomitant]
  7. CO-AMILOFRUSE(CO-AMILOFRUSE) [Concomitant]

REACTIONS (4)
  - Pneumonia [None]
  - Systemic inflammatory response syndrome [None]
  - Malaise [None]
  - Treatment failure [None]
